FAERS Safety Report 14133108 (Version 1)
Quarter: 2017Q4

REPORT INFORMATION
  Report Type: Spontaneous
  Country: FI (occurrence: FI)
  Receive Date: 20171027
  Receipt Date: 20171027
  Transmission Date: 20180321
  Serious: Yes (Hospitalization)
  Sender: FDA-Public Use
  Company Number: FI-ROCHE-2010043

PATIENT
  Age: 73 Year
  Sex: Male

DRUGS (6)
  1. GAZYVARO [Suspect]
     Active Substance: OBINUTUZUMAB
     Indication: CHRONIC LYMPHOCYTIC LEUKAEMIA
     Route: 042
     Dates: start: 20171011, end: 20171011
  2. GAZYVARO [Suspect]
     Active Substance: OBINUTUZUMAB
     Route: 042
     Dates: start: 20171012, end: 20171012
  3. CORTISONE [Concomitant]
     Active Substance: CORTISONE\HYDROCORTISONE
     Route: 048
     Dates: start: 20171011, end: 20171011
  4. CORTISONE [Concomitant]
     Active Substance: CORTISONE\HYDROCORTISONE
     Route: 042
     Dates: start: 20171012, end: 20171012
  5. GAZYVARO [Suspect]
     Active Substance: OBINUTUZUMAB
     Route: 042
     Dates: start: 20171013, end: 20171013
  6. CORTISONE [Concomitant]
     Active Substance: CORTISONE\HYDROCORTISONE
     Route: 042
     Dates: start: 20171013, end: 20171013

REACTIONS (1)
  - Atrial fibrillation [Recovered/Resolved]

NARRATIVE: CASE EVENT DATE: 20171011
